FAERS Safety Report 6388286-8 (Version None)
Quarter: 2009Q3

REPORT INFORMATION
  Report Type: 
  Country: None (occurrence: None)
  Receive Date: 20090930
  Receipt Date: 20090924
  Transmission Date: 20100115
  Serious: Yes (Life-Threatening)
  Sender: FDA-Public Use
  Company Number: 2009SP027314

PATIENT
  Sex: Male

DRUGS (2)
  1. PEG-INTRON [Suspect]
     Dosage: 100 MCG;
  2. REBETOL [Suspect]
     Dosage: 1000 MG;QD

REACTIONS (6)
  - HAEMOGLOBIN DECREASED [None]
  - OBSTRUCTION [None]
  - PANCREATIC PSEUDOCYST [None]
  - PLATELET COUNT DECREASED [None]
  - RENAL FAILURE [None]
  - SEPSIS [None]
